FAERS Safety Report 15782238 (Version 2)
Quarter: 2019Q1

REPORT INFORMATION
  Report Type: Report from Study
  Country: US (occurrence: US)
  Receive Date: 20190102
  Receipt Date: 20190116
  Transmission Date: 20190417
  Serious: Yes (Hospitalization, Other)
  Sender: FDA-Public Use
  Company Number: US-JNJFOC-20181236570

PATIENT
  Sex: Female

DRUGS (10)
  1. FLOVENT [Concomitant]
     Active Substance: FLUTICASONE PROPIONATE
  2. OMEPRAZOLE. [Concomitant]
     Active Substance: OMEPRAZOLE
  3. IMBRUVICA [Suspect]
     Active Substance: IBRUTINIB
     Indication: CHRONIC LYMPHOCYTIC LEUKAEMIA
     Route: 048
     Dates: start: 20180525
  4. ACYCLOVIR. [Concomitant]
     Active Substance: ACYCLOVIR
  5. ALBUTEROL. [Concomitant]
     Active Substance: ALBUTEROL
  6. IMBRUVICA [Suspect]
     Active Substance: IBRUTINIB
     Indication: CHRONIC LYMPHOCYTIC LEUKAEMIA
     Route: 048
     Dates: start: 20180526, end: 2018
  7. GAZYVA [Concomitant]
     Active Substance: OBINUTUZUMAB
  8. GAMMAGARD [Concomitant]
     Active Substance: HUMAN IMMUNOGLOBULIN G
  9. AZELASTINE HCL [Concomitant]
     Active Substance: AZELASTINE HYDROCHLORIDE
  10. DOCUSATE SODIUM. [Concomitant]
     Active Substance: DOCUSATE SODIUM

REACTIONS (2)
  - Internal haemorrhage [Unknown]
  - Precancerous cells present [Unknown]
